FAERS Safety Report 6263530-6 (Version None)
Quarter: 2009Q3

REPORT INFORMATION
  Report Type: 
  Country: None (occurrence: None)
  Receive Date: 20090710
  Receipt Date: 20090409
  Transmission Date: 20100115
  Serious: No
  Sender: FDA-Public Use
  Company Number: A0777861A

PATIENT
  Age: 49 Year
  Sex: Female

DRUGS (4)
  1. TYKERB [Suspect]
     Indication: DRUG USE FOR UNKNOWN INDICATION
     Dosage: 6TAB PER DAY
     Route: 048
     Dates: start: 20090326, end: 20090329
  2. STEROIDS [Concomitant]
  3. CONCURRENT MEDICATIONS [Concomitant]
  4. RADIATION THERAPY [Concomitant]

REACTIONS (5)
  - ABDOMINAL PAIN [None]
  - ADVERSE DRUG REACTION [None]
  - NAUSEA [None]
  - RASH GENERALISED [None]
  - VOMITING [None]
